FAERS Safety Report 25982340 (Version 1)
Quarter: 2025Q4

REPORT INFORMATION
  Report Type: Spontaneous
  Country: US (occurrence: US)
  Receive Date: 20251031
  Receipt Date: 20251031
  Transmission Date: 20260118
  Serious: Yes (Other)
  Sender: COOPERSURGICAL
  Company Number: US-COOPERSURGICAL, INC.-2025CPS007533

PATIENT
  Age: 32 Year
  Sex: Female
  Weight: 124.72 kg

DRUGS (1)
  1. PARAGARD T 380A [Suspect]
     Active Substance: COPPER
     Indication: Contraception
     Dosage: UNK
     Route: 015
     Dates: start: 20180110, end: 20230105

REACTIONS (25)
  - Surgery [Recovered/Resolved]
  - Uterine polyp [Unknown]
  - Hydrometra [Unknown]
  - Device breakage [Recovered/Resolved]
  - Foreign body in reproductive tract [Unknown]
  - Complication of device removal [Unknown]
  - Embedded device [Recovered/Resolved]
  - Uterine perforation [Unknown]
  - Haematoma [Unknown]
  - Haematocolpos [Recovered/Resolved]
  - Infection [Unknown]
  - Procedural pain [Recovered/Resolved]
  - Post procedural infection [Unknown]
  - Anxiety [Not Recovered/Not Resolved]
  - Emotional distress [Not Recovered/Not Resolved]
  - Nausea [Unknown]
  - Device dislocation [Recovered/Resolved]
  - Abnormal uterine bleeding [Not Recovered/Not Resolved]
  - Menstruation irregular [Not Recovered/Not Resolved]
  - Dysmenorrhoea [Recovered/Resolved]
  - Pain [Unknown]
  - Discomfort [Unknown]
  - Pelvic pain [Unknown]
  - Abdominal pain lower [Unknown]
  - Unevaluable event [Unknown]

NARRATIVE: CASE EVENT DATE: 20180424
